FAERS Safety Report 5823782-0 (Version None)
Quarter: 2008Q3

REPORT INFORMATION
  Report Type: 
  Country: None (occurrence: None)
  Receive Date: 20080725
  Receipt Date: 20080715
  Transmission Date: 20090109
  Serious: Yes (Other)
  Sender: FDA-Public Use
  Company Number: US-MERCK-0804USA00028

PATIENT
  Age: 9 Year
  Sex: Male
  Weight: 42 kg

DRUGS (6)
  1. SINGULAIR [Suspect]
     Indication: ASTHMA
     Route: 048
     Dates: start: 20050216, end: 20080328
  2. NASONEX [Concomitant]
     Indication: SEASONAL ALLERGY
     Dates: start: 20040604
  3. ZYRTEC-D 12 HOUR [Concomitant]
     Indication: SEASONAL ALLERGY
     Route: 048
     Dates: start: 20080314
  4. ALBUTEROL SULFATE [Concomitant]
     Indication: ASTHMA
     Dates: start: 20050101
  5. XOPENEX [Concomitant]
     Indication: ASTHMA
  6. [THERAPY UNSPECIFIED] [Concomitant]
     Indication: ASTHMA

REACTIONS (3)
  - DEPRESSION [None]
  - INTENTIONAL SELF-INJURY [None]
  - SUICIDAL IDEATION [None]
